FAERS Safety Report 7576316-7 (Version None)
Quarter: 2011Q2

REPORT INFORMATION
  Report Type: 
  Country: None (occurrence: None)
  Receive Date: 20110628
  Receipt Date: 20110615
  Transmission Date: 20111010
  Serious: Yes (Hospitalization)
  Sender: FDA-Public Use
  Company Number: US-ELI_LILLY_AND_COMPANY-US201106005149

PATIENT
  Sex: Female

DRUGS (4)
  1. FORTEO [Suspect]
     Indication: OSTEOPOROSIS
     Dosage: 20 UG, QD
     Dates: start: 20101216, end: 20110604
  2. AZITHROMYCIN [Concomitant]
  3. CORTISONE ACETATE [Concomitant]
  4. HYDROCODONE BITARTRATE AND ACETAMINOPHEN [Concomitant]
     Indication: ARTHRITIS
     Dosage: 7.5MG/500MG

REACTIONS (5)
  - BRONCHITIS [None]
  - COUGH [None]
  - ASTHMA [None]
  - DYSPNOEA [None]
  - NERVOUSNESS [None]
